FAERS Safety Report 14157904 (Version 2)
Quarter: 2017Q4

REPORT INFORMATION
  Report Type: Report from Study
  Country: MW (occurrence: MW)
  Receive Date: 20171105
  Receipt Date: 20171122
  Transmission Date: 20180321
  Serious: Yes (Other)
  Sender: FDA-Public Use
  Company Number: MW-CONCORDIA PHARMACEUTICALS INC.-GSH201711-006261

PATIENT

DRUGS (7)
  1. PREDNISOLONE. [Suspect]
     Active Substance: PREDNISOLONE
  2. TRIMETHOPRIM/SULFAMETHOXAZOLE [Concomitant]
     Active Substance: SULFAMETHOXAZOLE\TRIMETHOPRIM
     Indication: PNEUMOCYSTIS JIROVECII PNEUMONIA
     Dosage: TRIMETHOPRIM, 8?MG/KG/DOSE, PLUS SULPHAMETHOXAZOLE 60?MG/KG/DOSE (TMP/SMX) TWICE DAILY FOR 21?DAYS
  3. GENTAMICIN. [Concomitant]
     Active Substance: GENTAMICIN
  4. ZINC SULFATE [Concomitant]
     Active Substance: ZINC SULFATE\ZINC SULFATE ANHYDROUS
     Route: 048
  5. PREDNISOLONE. [Suspect]
     Active Substance: PREDNISOLONE
  6. BENZYLPENICILLIN [Concomitant]
     Active Substance: PENICILLIN G
     Dosage: 50,000?IU/KG/DOSE  FOUR  TIMES  A  DAY
     Route: 051
  7. PREDNISOLONE. [Suspect]
     Active Substance: PREDNISOLONE

REACTIONS (1)
  - Haematochezia [Unknown]
